FAERS Safety Report 6689099-X (Version None)
Quarter: 2010Q2

REPORT INFORMATION
  Report Type: 
  Country: None (occurrence: None)
  Receive Date: 20100420
  Receipt Date: 20100415
  Transmission Date: 20101027
  Serious: Yes (Hospitalization)
  Sender: FDA-Public Use
  Company Number: US-ABBOTT-10P-163-0638775-00

PATIENT
  Age: 37 Year
  Sex: Male

DRUGS (6)
  1. SEVOFLURANE [Suspect]
     Indication: GENERAL ANAESTHESIA
  2. MIDAZOLAM HCL [Concomitant]
     Indication: GENERAL ANAESTHESIA
  3. PROPOFOL [Concomitant]
     Indication: GENERAL ANAESTHESIA
  4. NITROUS OXIDE W/ OXYGEN [Concomitant]
     Indication: GENERAL ANAESTHESIA
  5. ACETAMINOPHEN [Concomitant]
     Indication: ANALGESIC THERAPY
     Dosage: 2-3 TIMES/DAY
  6. CODEINE SULFATE [Concomitant]
     Indication: ANALGESIC THERAPY
     Dosage: 2-3 TIMES/DAY

REACTIONS (2)
  - HEPATIC NECROSIS [None]
  - HEPATOTOXICITY [None]
